FAERS Safety Report 5523375-9 (Version None)
Quarter: 2007Q4

REPORT INFORMATION
  Report Type: 
  Country: None (occurrence: None)
  Receive Date: 20071121
  Receipt Date: 20071115
  Transmission Date: 20080405
  Serious: Yes (Congenital Anomaly)
  Sender: FDA-Public Use
  Company Number: B0496238A

PATIENT

DRUGS (5)
  1. COMBIVIR [Suspect]
  2. CIPROFLOXACIN [Concomitant]
     Indication: SINUSITIS
  3. AMOXICILLIN [Concomitant]
     Indication: SINUSITIS
  4. PARACETAMOL [Concomitant]
     Indication: SINUSITIS
  5. COTRIM [Concomitant]

REACTIONS (2)
  - CONGENITAL ANOMALY [None]
  - CRYPTORCHISM [None]
